FAERS Safety Report 6389376-6 (Version None)
Quarter: 2009Q4

REPORT INFORMATION
  Report Type: 
  Country: None (occurrence: None)
  Receive Date: 20091006
  Receipt Date: 20090923
  Transmission Date: 20100525
  Serious: Yes (Other)
  Sender: FDA-Public Use
  Company Number: US-ELI_LILLY_AND_COMPANY-US200909006576

PATIENT
  Age: 50 Year
  Sex: Female

DRUGS (2)
  1. EVISTA [Suspect]
     Dosage: 60 MG, DAILY (1/D)
     Route: 065
     Dates: start: 20090201, end: 20090401
  2. EVISTA [Suspect]
     Dosage: 60 MG, OTHER
     Route: 065
     Dates: start: 20090401

REACTIONS (2)
  - BREAST SWELLING [None]
  - MENORRHAGIA [None]
